FAERS Safety Report 20990894 (Version 1)
Quarter: 2022Q2

REPORT INFORMATION
  Report Type: Report from Study
  Country: US (occurrence: US)
  Receive Date: 20220622
  Receipt Date: 20220622
  Transmission Date: 20220721
  Serious: Yes (Death, Other)
  Sender: FDA-Public Use
  Company Number: US-BRISTOL-MYERS SQUIBB COMPANY-2022-055948

PATIENT
  Age: 63 Year
  Sex: Male
  Weight: 100.06 kg

DRUGS (18)
  1. REVLIMID [Suspect]
     Active Substance: LENALIDOMIDE
     Indication: Plasma cell myeloma
     Route: 048
  2. REVLIMID [Suspect]
     Active Substance: LENALIDOMIDE
     Indication: Plasma cell myeloma
  3. LISINOPRIL [Concomitant]
     Active Substance: LISINOPRIL
  4. ASPIRIN [Concomitant]
     Active Substance: ASPIRIN
  5. ENTRESTO [Concomitant]
     Active Substance: SACUBITRIL\VALSARTAN
  6. HYDROCHLOROTHIAZIDE\SPIRONOLACTONE [Concomitant]
     Active Substance: HYDROCHLOROTHIAZIDE\SPIRONOLACTONE
  7. ACYCLOVIR [Concomitant]
     Active Substance: ACYCLOVIR
  8. METOPROLOL SUCCINATE [Concomitant]
     Active Substance: METOPROLOL SUCCINATE
  9. MONTELUKAST SODIUM [Concomitant]
     Active Substance: MONTELUKAST SODIUM
  10. NOVOLIN NOS [Concomitant]
     Active Substance: INSULIN HUMAN
  11. GABAPENTIN [Concomitant]
     Active Substance: GABAPENTIN
  12. VITAMIN D3 [Concomitant]
     Active Substance: CHOLECALCIFEROL
  13. WARFARIN [Concomitant]
     Active Substance: WARFARIN
  14. CALCITRIOL [Concomitant]
     Active Substance: CALCITRIOL
  15. BRILINTA [Concomitant]
     Active Substance: TICAGRELOR
  16. SIMVASTATIN [Concomitant]
     Active Substance: SIMVASTATIN
  17. KLOR-CON [Concomitant]
     Active Substance: POTASSIUM CHLORIDE
  18. DEXAMETHASONE [Concomitant]
     Active Substance: DEXAMETHASONE

REACTIONS (1)
  - Death [Fatal]

NARRATIVE: CASE EVENT DATE: 20220607
